FAERS Safety Report 8205091-8 (Version None)
Quarter: 2012Q1

REPORT INFORMATION
  Report Type: 
  Country: None (occurrence: None)
  Receive Date: 20120313
  Receipt Date: 20120307
  Transmission Date: 20120608
  Serious: Yes (Other)
  Sender: FDA-Public Use
  Company Number: US-ABBOTT-11P-163-0708133-00

PATIENT
  Sex: Female

DRUGS (11)
  1. AMLODIPINE [Concomitant]
     Indication: RAYNAUD'S PHENOMENON
  2. ZITHROMAX [Suspect]
  3. UNKNOWN ALLERGY DROP [Concomitant]
     Indication: HYPERSENSITIVITY
  4. CYTOMEL [Concomitant]
     Indication: PRODUCT USED FOR UNKNOWN INDICATION
  5. HUMIRA [Suspect]
     Indication: PSORIASIS
     Dates: start: 20080101
  6. METHOTREXATE [Suspect]
     Indication: PRODUCT USED FOR UNKNOWN INDICATION
     Dates: start: 20100621, end: 20100915
  7. CORTISONE ACETATE [Concomitant]
     Indication: PRODUCT USED FOR UNKNOWN INDICATION
     Dates: start: 20110101, end: 20110101
  8. SYNTHROID [Concomitant]
     Indication: PRODUCT USED FOR UNKNOWN INDICATION
  9. WOMAN'S MULTIVITAMIN [Concomitant]
     Indication: PRODUCT USED FOR UNKNOWN INDICATION
  10. UNKNOWN BLOOD PRESSURE MEDICATION [Concomitant]
     Indication: HYPERTENSION
  11. VALIUM [Concomitant]
     Indication: PROPHYLAXIS

REACTIONS (21)
  - OVERDOSE [None]
  - ERYTHEMA [None]
  - OROPHARYNGEAL BLISTERING [None]
  - EYE SWELLING [None]
  - EAR TUBE INSERTION [None]
  - MUSCLE SPASMS [None]
  - GRIP STRENGTH DECREASED [None]
  - RASH GENERALISED [None]
  - CONDITION AGGRAVATED [None]
  - HEPATIC ENZYME INCREASED [None]
  - EAR OPERATION [None]
  - BLINDNESS [None]
  - TOOTH EXTRACTION [None]
  - VISUAL IMPAIRMENT [None]
  - BACK PAIN [None]
  - HYPERKERATOSIS [None]
  - ALOPECIA [None]
  - SINUSITIS [None]
  - DIZZINESS [None]
  - RASH ERYTHEMATOUS [None]
  - GENERALISED OEDEMA [None]
